FAERS Safety Report 8310315 (Version 2)
Quarter: 2013Q1

REPORT INFORMATION
  Report Type: Report from Study
  Country: GB (occurrence: GB)
  Receive Date: 20111223
  Receipt Date: 20130306
  Transmission Date: 20140127
  Serious: Yes (Death)
  Sender: FDA-Public Use
  Company Number: GB-ROCHE-1023890

PATIENT
  Sex: Female
  Weight: 80 kg

DRUGS (2)
  1. RITUXIMAB [Suspect]
     Indication: PRODUCT USED FOR UNKNOWN INDICATION
     Route: 065
     Dates: start: 20090302
  2. METHOTREXATE [Concomitant]

REACTIONS (3)
  - Cerebrovascular accident [Fatal]
  - Chronic obstructive pulmonary disease [Fatal]
  - Atrial fibrillation [Fatal]
